FAERS Safety Report 6347572-8 (Version None)
Quarter: 2009Q3

REPORT INFORMATION
  Report Type: 
  Country: None (occurrence: None)
  Receive Date: 20090909
  Receipt Date: 20090909
  Transmission Date: 20100115
  Serious: Yes (Hospitalization)
  Sender: FDA-Public Use
  Company Number: None

PATIENT
  Sex: Female
  Weight: 79 kg

DRUGS (2)
  1. GEMCITABINE HCL [Suspect]
     Dosage: 2256 MG
  2. LISINOPRIL [Concomitant]

REACTIONS (5)
  - DYSPNOEA [None]
  - FLUID OVERLOAD [None]
  - HYDRONEPHROSIS [None]
  - RENAL FAILURE ACUTE [None]
  - THROMBOSIS [None]
